FAERS Safety Report 6571259-X (Version None)
Quarter: 2010Q1

REPORT INFORMATION
  Report Type: 
  Country: None (occurrence: None)
  Receive Date: 20100129
  Receipt Date: 20100116
  Transmission Date: 20100710
  Serious: Yes (Life-Threatening, Hospitalization, Other)
  Sender: FDA-Public Use
  Company Number: AUR-APL-2010-00158

PATIENT
  Age: 9 Year
  Sex: Male

DRUGS (7)
  1. DIDANOSINE [Suspect]
     Indication: HIV INFECTION
  2. ZIDOVUDINE [Suspect]
     Indication: HIV INFECTION
  3. NELFINAVIR MESYLATE [Suspect]
     Indication: HIV INFECTION
  4. SULFAMETHOXAZOLE TRIMETHOPRIM [Suspect]
     Indication: PROPHYLAXIS
  5. KIVEXA  (LAMIVUDINE+ABACAVIR) [Suspect]
     Indication: HIV INFECTION
  6. EFAVIRENZ [Suspect]
     Indication: HIV INFECTION
  7. LAMIVUDINE [Suspect]
     Indication: HIV INFECTION

REACTIONS (18)
  - ACUTE HEPATIC FAILURE [None]
  - CACHEXIA [None]
  - CHOLESTASIS [None]
  - GRAFT DYSFUNCTION [None]
  - HEPATIC ENCEPHALOPATHY [None]
  - HEPATIC NECROSIS [None]
  - HEPATITIS [None]
  - HYPERLIPIDAEMIA [None]
  - HYPERTENSION [None]
  - LIVER INJURY [None]
  - LIVER TRANSPLANT [None]
  - LIVER TRANSPLANT REJECTION [None]
  - LYMPHADENOPATHY [None]
  - MYOPATHY [None]
  - PHARYNGITIS [None]
  - RENAL IMPAIRMENT [None]
  - THERAPEUTIC AGENT TOXICITY [None]
  - VIRAL LOAD INCREASED [None]
